FAERS Safety Report 7435604-5 (Version None)
Quarter: 2011Q2

REPORT INFORMATION
  Report Type: 
  Country: None (occurrence: None)
  Receive Date: 20110418
  Receipt Date: 20110404
  Transmission Date: 20111010
  Serious: Yes (Hospitalization)
  Sender: FDA-Public Use
  Company Number: JPI-P-014435

PATIENT
  Age: 45 Year
  Sex: Female

DRUGS (2)
  1. XYREM [Suspect]
     Indication: FIBROMYALGIA
     Dosage: 4.5 GM (2.25 GM, 2 IN 1 D), ORAL; (TITRATING DOSE), ORAL; (3 GM FIRST DOSE/2 GM SECOND DOSE), ORAL
     Route: 048
     Dates: start: 20110117
  2. XYREM [Suspect]
     Indication: FIBROMYALGIA
     Dosage: 4.5 GM (2.25 GM, 2 IN 1 D), ORAL; (TITRATING DOSE), ORAL; (3 GM FIRST DOSE/2 GM SECOND DOSE), ORAL
     Route: 048
     Dates: start: 20100211

REACTIONS (1)
  - LYMPHOMA [None]
